FAERS Safety Report 6127368-2 (Version None)
Quarter: 2009Q1

REPORT INFORMATION
  Report Type: 
  Country: None (occurrence: None)
  Receive Date: 20090319
  Receipt Date: 20090302
  Transmission Date: 20090719
  Serious: Yes (Other)
  Sender: FDA-Public Use
  Company Number: 6049444

PATIENT
  Sex: Female

DRUGS (2)
  1. EUTHYROX 112 (112 MICROGRAM, TABLET) (LEVOTHYROXINE SODIUM) [Suspect]
     Indication: HYPOTHYROIDISM
     Dosage: 112 MCG (112 MCG, 1 IN 1 D) ORAL
     Route: 048
     Dates: start: 20080801
  2. MENOPAUSAL HORMONE TREATMENT [Concomitant]

REACTIONS (4)
  - ANXIETY [None]
  - FLUSHING [None]
  - RESTLESSNESS [None]
  - VENTRICULAR FLUTTER [None]
